FAERS Safety Report 7729171-6 (Version None)
Quarter: 2011Q3

REPORT INFORMATION
  Report Type: 
  Country: None (occurrence: None)
  Receive Date: 20110906
  Receipt Date: 20110830
  Transmission Date: 20111222
  Serious: No
  Sender: FDA-Public Use
  Company Number: US-PFIZER INC-2011203320

PATIENT
  Sex: Female

DRUGS (2)
  1. FLAGYL [Suspect]
     Indication: ABDOMINAL DISCOMFORT
  2. FLAGYL [Suspect]
     Indication: DIARRHOEA
     Dosage: UNK

REACTIONS (1)
  - DRUG INEFFECTIVE [None]
